FAERS Safety Report 14907658 (Version 1)
Quarter: 2018Q2

REPORT INFORMATION
  Report Type: Report from Study
  Country: US (occurrence: US)
  Receive Date: 20180517
  Receipt Date: 20180517
  Transmission Date: 20180711
  Serious: Yes (Other)
  Sender: FDA-Public Use
  Company Number: US-TEVA-2018-US-891947

PATIENT
  Age: 67 Year
  Sex: Female

DRUGS (9)
  1. HYDROCHLOROT [Concomitant]
     Active Substance: HYDROCHLOROTHIAZIDE
     Route: 065
  2. METOPROLOL TARTRATE. [Concomitant]
     Active Substance: METOPROLOL TARTRATE
     Route: 065
  3. COPAXONE [Suspect]
     Active Substance: GLATIRAMER ACETATE
     Indication: MULTIPLE SCLEROSIS
     Dosage: 17.1429 MILLIGRAM DAILY; FORMULATION:PREFILLED SYRINGE
     Route: 058
     Dates: start: 20180119
  4. CALCIUM [Concomitant]
     Active Substance: CALCIUM
     Route: 065
  5. VITAMIN D3 [Concomitant]
     Active Substance: CHOLECALCIFEROL
     Route: 065
  6. BACLOFEN. [Concomitant]
     Active Substance: BACLOFEN
     Route: 065
  7. OMEGA [Concomitant]
     Active Substance: CONVALLARIA MAJALIS\CRATAEGUS LAEVIGATA LEAF\PROXYPHYLLINE
     Route: 065
  8. LOSARTAN. [Concomitant]
     Active Substance: LOSARTAN
     Route: 065
  9. SIMVASTATIN. [Concomitant]
     Active Substance: SIMVASTATIN
     Route: 065

REACTIONS (8)
  - Trigeminal neuralgia [Not Recovered/Not Resolved]
  - Orthosis user [Not Recovered/Not Resolved]
  - Hemiparesis [Not Recovered/Not Resolved]
  - Peroneal nerve palsy [Not Recovered/Not Resolved]
  - Hypoaesthesia [Not Recovered/Not Resolved]
  - Parathyroid disorder [Not Recovered/Not Resolved]
  - Urine calcium increased [Not Recovered/Not Resolved]
  - Fatigue [Not Recovered/Not Resolved]
